FAERS Safety Report 12088547 (Version 1)
Quarter: 2016Q1

REPORT INFORMATION
  Report Type: Report from Study
  Country: CA (occurrence: CA)
  Receive Date: 20160218
  Receipt Date: 20160218
  Transmission Date: 20160526
  Serious: Yes (Other)
  Sender: FDA-Public Use
  Company Number: CA-ROCHE-1545640

PATIENT
  Age: 48 Year
  Sex: Female

DRUGS (33)
  1. RITUXAN [Suspect]
     Active Substance: RITUXIMAB
     Indication: GRANULOMATOSIS WITH POLYANGIITIS
     Dosage: FREQUENCY: DAY 1 AND DAY 15. LAST RITUXAN 24-OCT-2014
     Route: 042
     Dates: start: 20140411
  2. DOCUSATE [Concomitant]
     Active Substance: DOCUSATE
  3. MUPIROCIN. [Concomitant]
     Active Substance: MUPIROCIN
     Dosage: 2%
     Route: 065
  4. ALENDRONATE [Concomitant]
     Active Substance: ALENDRONATE SODIUM
  5. VOLTAREN [Concomitant]
     Active Substance: DICLOFENAC SODIUM
     Dosage: AS REQUIRED
     Route: 065
  6. DOMPERIDONE [Concomitant]
     Active Substance: DOMPERIDONE
     Dosage: AS REQUIRED
     Route: 065
  7. NYSTATIN. [Concomitant]
     Active Substance: NYSTATIN
     Dosage: AS REQUIRED
     Route: 065
  8. MYOFLEX (CANADA) [Concomitant]
     Route: 061
  9. EURO-K [Concomitant]
  10. PREDNISONE. [Concomitant]
     Active Substance: PREDNISONE
  11. RITUXAN [Suspect]
     Active Substance: RITUXIMAB
     Route: 042
     Dates: start: 20150512
  12. SALBUTAMOL [Concomitant]
     Active Substance: ALBUTEROL
     Dosage: AS REQUIRED
     Route: 065
  13. PULMICORT TURBUHALER [Concomitant]
     Active Substance: BUDESONIDE
  14. KETAMINE [Concomitant]
     Active Substance: KETAMINE
     Route: 045
  15. LIDOCAINE. [Concomitant]
     Active Substance: LIDOCAINE
     Route: 045
  16. SOLU-MEDROL [Concomitant]
     Active Substance: METHYLPREDNISOLONE SODIUM SUCCINATE
     Indication: PREMEDICATION
     Route: 042
     Dates: start: 20140411
  17. OXYCODONE HYDROCHLORIDE. [Concomitant]
     Active Substance: OXYCODONE HYDROCHLORIDE
  18. HYDROMORPHONE [Concomitant]
     Active Substance: HYDROMORPHONE
  19. BENADRYL [Concomitant]
     Active Substance: DIPHENHYDRAMINE HYDROCHLORIDE
     Indication: PREMEDICATION
     Route: 048
     Dates: start: 20140411
  20. VITAMIN B12 [Concomitant]
     Active Substance: CYANOCOBALAMIN
  21. PREGABALIN. [Concomitant]
     Active Substance: PREGABALIN
  22. CYMBALTA [Concomitant]
     Active Substance: DULOXETINE HYDROCHLORIDE
  23. SEREVENT DISKUS [Concomitant]
     Active Substance: SALMETEROL XINAFOATE
  24. D-TABS [Concomitant]
     Active Substance: CHOLECALCIFEROL
  25. TYLENOL [Concomitant]
     Active Substance: ACETAMINOPHEN
     Indication: PREMEDICATION
     Route: 048
     Dates: start: 20140411
  26. OXCARBAZEPINE. [Concomitant]
     Active Substance: OXCARBAZEPINE
  27. OXAZEPAM. [Concomitant]
     Active Substance: OXAZEPAM
  28. FERROUS SULFATE [Concomitant]
     Active Substance: FERROUS SULFATE\FERROUS SULFATE, DRIED
  29. EURO-LAC [Concomitant]
  30. FOLIC ACID. [Concomitant]
     Active Substance: FOLIC ACID
  31. PANTOPRAZOLE [Concomitant]
     Active Substance: PANTOPRAZOLE SODIUM
  32. FLOVENT [Concomitant]
     Active Substance: FLUTICASONE PROPIONATE
  33. SALINE [Concomitant]
     Dosage: WATER
     Route: 045

REACTIONS (7)
  - Hypotension [Unknown]
  - Volvulus [Recovered/Resolved]
  - Granulomatosis with polyangiitis [Not Recovered/Not Resolved]
  - Pneumonia [Unknown]
  - Fall [Unknown]
  - Pneumonia [Recovered/Resolved]
  - Muscular weakness [Recovered/Resolved]

NARRATIVE: CASE EVENT DATE: 201410
